FAERS Safety Report 17317729 (Version 1)
Quarter: 2020Q1

REPORT INFORMATION
  Report Type: Spontaneous
  Country: US (occurrence: US)
  Receive Date: 20200124
  Receipt Date: 20200124
  Transmission Date: 20200409
  Serious: No
  Sender: FDA-Public Use
  Company Number: US-OTSUKA-2019_032851

PATIENT
  Age: 4 Decade
  Sex: Female

DRUGS (6)
  1. DEPAKOTE [Concomitant]
     Active Substance: DIVALPROEX SODIUM
     Indication: PRODUCT USED FOR UNKNOWN INDICATION
     Dosage: LOW DOSE
     Route: 065
  2. LATUDA [Suspect]
     Active Substance: LURASIDONE HYDROCHLORIDE
     Indication: PRODUCT USED FOR UNKNOWN INDICATION
     Dosage: 20 MG, UNK
     Route: 065
  3. REXULTI [Suspect]
     Active Substance: BREXPIPRAZOLE
     Indication: DEPRESSION
     Dosage: 0.5 MG, UNK
     Route: 065
     Dates: start: 2019, end: 2019
  4. LATUDA [Suspect]
     Active Substance: LURASIDONE HYDROCHLORIDE
     Dosage: INCREASED DOSE, UNK
     Route: 065
  5. REXULTI [Suspect]
     Active Substance: BREXPIPRAZOLE
     Indication: BIPOLAR I DISORDER
     Dosage: 1 MG, UNK
     Route: 065
     Dates: start: 2019, end: 2019
  6. REXULTI [Suspect]
     Active Substance: BREXPIPRAZOLE
     Dosage: 2 MG, UNK
     Route: 065
     Dates: start: 2019, end: 2019

REACTIONS (5)
  - Gynaecomastia [Recovering/Resolving]
  - Therapeutic product effect incomplete [Unknown]
  - Breast swelling [Recovering/Resolving]
  - Breast discharge [Recovered/Resolved]
  - Negative thoughts [Unknown]

NARRATIVE: CASE EVENT DATE: 2019
